FAERS Safety Report 4716829-6 (Version None)
Quarter: 2005Q3

REPORT INFORMATION
  Report Type: 
  Country: None (occurrence: None)
  Receive Date: 20050719
  Receipt Date: 20050311
  Transmission Date: 20060218
  Serious: Yes (Hospitalization, Disabling)
  Sender: FDA-Public Use
  Company Number: US-MERCK-0503USA02540

PATIENT
  Age: 33 Year
  Sex: Male
  Weight: 57 kg

DRUGS (8)
  1. VIOXX [Suspect]
     Indication: RHEUMATOID ARTHRITIS
     Route: 048
     Dates: start: 20000717, end: 20020823
  2. BIAXIN [Concomitant]
     Route: 048
  3. HYOSCYAMINE [Concomitant]
     Route: 048
  4. PREVACID [Concomitant]
     Route: 048
  5. CIPRO [Concomitant]
     Route: 048
  6. ZYDONE [Concomitant]
     Route: 048
  7. ANASPAZ [Concomitant]
     Route: 048
  8. ELOCON [Concomitant]
     Route: 061

REACTIONS (8)
  - ATRIAL FIBRILLATION [None]
  - CARDIAC FAILURE CONGESTIVE [None]
  - CORONARY ARTERY DISEASE [None]
  - FATIGUE [None]
  - MYOCARDIAL INFARCTION [None]
  - SICK SINUS SYNDROME [None]
  - THROMBOCYTHAEMIA [None]
  - UPPER GASTROINTESTINAL HAEMORRHAGE [None]
